FAERS Safety Report 7033507-1 (Version None)
Quarter: 2010Q4

REPORT INFORMATION
  Report Type: 
  Country: None (occurrence: None)
  Receive Date: 20101007
  Receipt Date: 20100929
  Transmission Date: 20110411
  Serious: Yes (Hospitalization)
  Sender: FDA-Public Use
  Company Number: US-B.I. PHARMACEUTICALS,INC./RIDGEFIELD-2010-BP-11007BP

PATIENT
  Age: 59 Year
  Sex: Male

DRUGS (7)
  1. FLOMAX [Suspect]
     Indication: BENIGN PROSTATIC HYPERPLASIA
     Dosage: 0.4 MG
     Route: 048
     Dates: start: 20070101, end: 20100801
  2. KLONOPIN [Concomitant]
     Indication: DEPRESSION
  3. REMERON [Concomitant]
     Indication: DEPRESSION
  4. CYMBALTA [Concomitant]
     Indication: DEPRESSION
  5. CYMBALTA [Concomitant]
     Indication: ANXIETY
  6. SEROQUEL XR [Concomitant]
     Indication: DEPRESSION
  7. AVODART [Concomitant]
     Indication: BENIGN PROSTATIC HYPERPLASIA

REACTIONS (3)
  - BACK PAIN [None]
  - BLOOD URINE PRESENT [None]
  - DRUG INEFFECTIVE [None]
